FAERS Safety Report 10285775 (Version 1)
Quarter: 2014Q3

REPORT INFORMATION
  Report Type: Spontaneous
  Country: JP (occurrence: JP)
  Receive Date: 20140709
  Receipt Date: 20140709
  Transmission Date: 20150326
  Serious: Yes (Life-Threatening, Other)
  Sender: FDA-Public Use
  Company Number: JP-ASTRAZENECA-2014SE49225

PATIENT
  Age: 29 Year
  Sex: Male
  Weight: 70 kg

DRUGS (6)
  1. ANTIDEPRESSANT [Concomitant]
     Active Substance: UNSPECIFIED INGREDIENT
     Dates: start: 20140626, end: 20140626
  2. SEROQUEL [Suspect]
     Active Substance: QUETIAPINE FUMARATE
     Route: 048
     Dates: start: 20140626, end: 20140626
  3. PSYCHOTROPIC AGENT [Concomitant]
     Dates: start: 20140626, end: 20140626
  4. PSYCHOTROPIC AGENT [Concomitant]
     Dates: start: 20140626, end: 20140626
  5. HYPNOTICS AND SEDATIVES [Concomitant]
     Active Substance: UNSPECIFIED INGREDIENT
     Dates: start: 20140626, end: 20140626
  6. HYPNOTICS AND SEDATIVES [Concomitant]
     Active Substance: UNSPECIFIED INGREDIENT
     Dates: start: 20140626, end: 20140626

REACTIONS (5)
  - Altered state of consciousness [Unknown]
  - Dyslalia [Unknown]
  - Suicide attempt [Unknown]
  - Intentional overdose [Unknown]
  - Dizziness [Unknown]

NARRATIVE: CASE EVENT DATE: 20140626
